FAERS Safety Report 17478603 (Version 1)
Quarter: 2020Q1

REPORT INFORMATION
  Report Type: Spontaneous
  Country: JP (occurrence: JP)
  Receive Date: 20200228
  Receipt Date: 20200228
  Transmission Date: 20200409
  Serious: Yes (Other)
  Sender: FDA-Public Use
  Company Number: JP-UCBSA-2019044959

PATIENT
  Age: 85 Year
  Sex: Female

DRUGS (5)
  1. E KEPPRA [Suspect]
     Active Substance: LEVETIRACETAM
     Dosage: 600 MILLIGRAM (EVENING), ONCE DAILY (QD)
     Route: 048
     Dates: start: 202002
  2. E KEPPRA [Suspect]
     Active Substance: LEVETIRACETAM
     Indication: EPILEPSY
     Dosage: 250 MILLIGRAM (DAILY MORNING), ONCE DAILY (QD)
     Route: 048
     Dates: start: 201908
  3. E KEPPRA [Suspect]
     Active Substance: LEVETIRACETAM
     Dosage: 250 MILLIGRAM, 2X/DAY (BID)
     Route: 048
     Dates: start: 201909
  4. E KEPPRA [Suspect]
     Active Substance: LEVETIRACETAM
     Indication: EPILEPSY
     Dosage: 300 MILLIGRAM, 2X/DAY (BID)
     Route: 048
     Dates: start: 202002, end: 202002
  5. E KEPPRA [Suspect]
     Active Substance: LEVETIRACETAM
     Dosage: 250 MILLIGRAM (MORNING) , ONCE DAILY (QD)
     Route: 048
     Dates: start: 202002

REACTIONS (4)
  - Somnolence [Unknown]
  - Off label use [Unknown]
  - Epilepsy [Unknown]
  - Malaise [Unknown]

NARRATIVE: CASE EVENT DATE: 201908
